FAERS Safety Report 5810412-7 (Version None)
Quarter: 2008Q3

REPORT INFORMATION
  Report Type: 
  Country: None (occurrence: None)
  Receive Date: 20080715
  Receipt Date: 20080704
  Transmission Date: 20090109
  Serious: Yes (Other)
  Sender: FDA-Public Use
  Company Number: FR-ROCHE-574243

PATIENT
  Sex: Female
  Weight: 50 kg

DRUGS (10)
  1. PEGASYS [Suspect]
     Dosage: DOSE- 180 OU, FREQUENCY- QW, FORM- INJ
     Route: 058
     Dates: start: 20080117
  2. PEGASYS [Suspect]
     Dosage: FORM- INJ, DRUG- PEGASYS OPEN LABEL.
     Route: 058
     Dates: start: 20080522
  3. BLINDED RO 4588161 (HCV POLYMERASE INH) [Suspect]
     Dosage: DOSE- BLINDED. LAST DOSE PRIOR TO SAE 15 MAY 2008.
     Route: 048
     Dates: start: 20080117
  4. RIBAVIRIN [Suspect]
     Route: 048
     Dates: start: 20080117
  5. ATARAX [Concomitant]
     Dosage: UNIT- NOT PROVIDED
     Dates: start: 20080313
  6. SERETIDE [Concomitant]
     Dosage: UNIT- 'BENFFER'
     Dates: start: 20060101
  7. ABUFENE [Concomitant]
     Dosage: DRUG- ABUFEN
     Dates: start: 20060101
  8. PROGESTERONE [Concomitant]
     Dosage: UNIT- 'LI'
     Dates: start: 20060101
  9. KARDEGIC [Concomitant]
     Dates: start: 20060101
  10. ESTRADERM [Concomitant]
     Dosage: REPORTED AS ESTEDERM
     Dates: start: 20060101

REACTIONS (1)
  - PERIODONTAL DISEASE [None]
